FAERS Safety Report 25486657 (Version 1)
Quarter: 2025Q2

REPORT INFORMATION
  Report Type: Report from Study
  Country: ES (occurrence: None)
  Receive Date: 20250627
  Receipt Date: 20250627
  Transmission Date: 20250717
  Serious: Yes (Other)
  Sender: SUPERNUS PHARMACEUTICALS, INC.
  Company Number: ES-SUPERNUS Pharmaceuticals, Inc.-SUP202506-002144

PATIENT
  Age: 40 Month
  Sex: Female

DRUGS (3)
  1. TOPIRAMATE [Suspect]
     Active Substance: TOPIRAMATE
     Indication: Seizure
  2. STIRIPENTOL [Suspect]
     Active Substance: STIRIPENTOL
     Indication: Seizure
  3. VALPROATE [Suspect]
     Active Substance: VALPROIC ACID
     Indication: Seizure

REACTIONS (4)
  - Drug interaction [Unknown]
  - Hyperammonaemia [Unknown]
  - Somnolence [Unknown]
  - Product use issue [Unknown]
